FAERS Safety Report 25929408 (Version 2)
Quarter: 2025Q4

REPORT INFORMATION
  Report Type: Spontaneous
  Country: US (occurrence: US)
  Receive Date: 20251016
  Receipt Date: 20251125
  Transmission Date: 20260117
  Serious: No
  Sender: ABBVIE
  Company Number: US-ABBVIE-6505625

PATIENT
  Age: 68 Year
  Sex: Female

DRUGS (21)
  1. VYALEV [Suspect]
     Active Substance: FOSCARBIDOPA\FOSLEVODOPA
     Indication: Product used for unknown indication
     Dosage: CONTINUOUS 24 HOUR INFUSION, LAST ADMIN DATE: 2025?12-240 MG/ML SOLN?SIG: 0.39 ML/HR BY CONTIN. S...
     Route: 058
     Dates: start: 202504
  2. VYALEV [Suspect]
     Active Substance: FOSCARBIDOPA\FOSLEVODOPA
     Route: 058
  3. SOTYKTU [Concomitant]
     Active Substance: DEUCRAVACITINIB
     Indication: Product used for unknown indication
     Dosage: TAKE 1 TABLET (6MG TOTAL) BY MOUTH DAILY
  4. ACETYLCYSTEINE [Concomitant]
     Active Substance: ACETYLCYSTEINE
     Indication: Product used for unknown indication
     Dosage: 600 MG BY MOUTH DAILY. 1 TABLET DAILY
  5. DULCOLAX [Concomitant]
     Indication: Product used for unknown indication
     Dosage: 5 MG BY MOUTH NIGHTLY AT BEDTIME AS NEEDED.
  6. SINEMET [Concomitant]
     Active Substance: CARBIDOPA\LEVODOPA
     Indication: Product used for unknown indication
     Dosage: 0.5 TABLETS BY MOUTH 4 (FOUR) TIMES A DAY. TAKE 1/2 A TAB WITH EACH CR TABLET EVERY 3 HOURS?WHILE...
  7. CELEBREX [Concomitant]
     Active Substance: CELECOXIB
     Indication: Product used for unknown indication
     Dosage: 1 CAPSULE (100 MG TOTAL) BY MOUTH 2 (TWO) TIMES A DAY AS NEEDED FOR PAIN (SPECIFIC LOCATION IN?CO...
  8. CELEXA [Concomitant]
     Active Substance: CITALOPRAM HYDROBROMIDE
     Indication: Product used for unknown indication
  9. NASALCROM [Concomitant]
     Active Substance: CROMOLYN SODIUM
     Indication: Product used for unknown indication
     Dosage: 5.2 MG/SPRAY (4 %) NASAL SPRAY?SIG: 1 SPRAY BY NASAL ROUTE 4 (FOUR) TIMES A DAY.
  10. COLACE [Concomitant]
     Active Substance: DOCUSATE SODIUM
     Indication: Constipation
     Dosage: CAPSULE (100 MG TOTAL) BY MOUTH 3 (THREE) TIMES A DAY AS NEEDED FOR MILD CONSTIPATION.
  11. ENBREL [Concomitant]
     Active Substance: ETANERCEPT
     Indication: Product used for unknown indication
     Dosage: INJECT 1 ML (50 MG TOTAL) UNDER THE SKIN ONCE A WEEK.
  12. FLUNISOLIDE [Concomitant]
     Active Substance: FLUNISOLIDE
     Indication: Product used for unknown indication
     Dosage: 25 MCG (0.025 %) SPRY?SIG: 2 SPRAYS BY EACH NARE ROUTE DAILY
  13. TENEX [Concomitant]
     Active Substance: GUANFACINE HYDROCHLORIDE
     Indication: Product used for unknown indication
     Dosage: TAKE 1 MG BY MOUTH 2 (TWO) TIMES A DAY.
  14. ADVIL [Concomitant]
     Active Substance: IBUPROFEN
     Indication: Pain
     Dosage: TAKE 2 TABLETS (400 MG TOTAL) BY MOUTH EVERY 8 (EIGHT) HOURS AS NEEDED FOR PAIN
  15. MAGNESIUM HYDROXIDE [Concomitant]
     Active Substance: MAGNESIUM HYDROXIDE
     Indication: Product used for unknown indication
     Dosage: 400 MG/5 ML SUSP?SIG: NIGHTLY AT BEDTIME.
  16. NICORETTE [Concomitant]
     Active Substance: NICOTINE
     Indication: Tobacco user
     Dosage: LACE 2 MG INSIDE CHEEK AS NEEDED FOR SMOKING CESSATION.
  17. BIOTENE NOS [Concomitant]
     Active Substance: UNSPECIFIED INGREDIENT
     Indication: Dry mouth
     Dosage: 1 SPRAY IN THE MOUTH OR THROAT 4 (FOUR) TIMES A DAY AS NEEDED
  18. SENOKOT [Concomitant]
     Active Substance: SENNOSIDES
     Indication: Constipation
     Dosage: 8.6 MG TABLET TAKE 1 TABLET BY MOUTH 2 (TWO) TIMES A DAY AS NEEDED .
  19. RETIN-A [Concomitant]
     Active Substance: TRETINOIN
     Indication: Product used for unknown indication
     Dosage: APPLY TOPICALLY NIGHTLY AT BEDTIME. APPLY PEA SIZED AMOUNT TO FACE AT NIGHT
  20. TRIAMCINOLONE ACETONIDE [Concomitant]
     Active Substance: TRIAMCINOLONE ACETONIDE
     Indication: Product used for unknown indication
     Dosage: APPLY TOPICALLY 2 (TWO) TIMES A DAY. APPLY TWICE A DAY TO AFFECTED AREA OF HANDS
  21. GEMTESA [Concomitant]
     Active Substance: VIBEGRON
     Indication: Product used for unknown indication
     Dosage: 1 TABLET (75 MG TOTAL) BY MOUTH DAILY

REACTIONS (3)
  - Oedema [Recovered/Resolved]
  - Drug ineffective [Unknown]
  - Infusion site pain [Unknown]

NARRATIVE: CASE EVENT DATE: 20250101
